FAERS Safety Report 11815815 (Version 1)
Quarter: 2015Q4

REPORT INFORMATION
  Report Type: Spontaneous
  Country: GB (occurrence: GB)
  Receive Date: 20151209
  Receipt Date: 20151209
  Transmission Date: 20160305
  Serious: Yes (Life-Threatening, Hospitalization, Other)
  Sender: FDA-Public Use
  Company Number: GB-BANPHARM-20154476

PATIENT
  Age: 52 Year
  Sex: Male

DRUGS (16)
  1. AMLODIPINE [Suspect]
     Active Substance: AMLODIPINE BESYLATE
     Dates: start: 20101001
  2. ATORVASTATIN [Concomitant]
     Active Substance: ATORVASTATIN
     Dosage: 20 MG,
  3. CLOPIDOGREL [Concomitant]
     Active Substance: CLOPIDOGREL BISULFATE
  4. RAMIPRIL. [Suspect]
     Active Substance: RAMIPRIL
     Dates: start: 20131010
  5. ATORVASTATIN [Concomitant]
     Active Substance: ATORVASTATIN
     Dosage: 80 MG,
  6. IBUPROFEN UNKNOWN PRODUCT [Suspect]
     Active Substance: IBUPROFEN
     Dates: start: 20141119
  7. AMLODIPINE [Suspect]
     Active Substance: AMLODIPINE BESYLATE
     Dosage: 20 DF, ONCE,
     Dates: start: 20141201, end: 20141201
  8. ASPIRIN. [Suspect]
     Active Substance: ASPIRIN
     Dates: start: 20131008
  9. FLUOXETINE [Suspect]
     Active Substance: FLUOXETINE HYDROCHLORIDE
     Indication: DEPRESSION
     Dosage: 20 MG,
     Route: 048
     Dates: start: 20141217
  10. BISOPROLOL [Suspect]
     Active Substance: BISOPROLOL
     Dosage: DF 16, TOTAL,
     Dates: start: 20141201, end: 20141201
  11. CO-AMOXICLAV [Concomitant]
     Active Substance: AMOXICILLIN\CLAVULANIC ACID
     Route: 017
  12. IBUPROFEN UNKNOWN PRODUCT [Suspect]
     Active Substance: IBUPROFEN
     Dosage: 16 DF, ONCE,
     Dates: start: 20141201, end: 20141201
  13. RAMIPRIL. [Suspect]
     Active Substance: RAMIPRIL
     Dosage: 56 DF, TOTAL,
     Dates: start: 20141201, end: 20141201
  14. ASPIRIN. [Suspect]
     Active Substance: ASPIRIN
     Dosage: DF 48, TOTAL,
     Dates: start: 20141201, end: 20141201
  15. BISOPROLOL [Suspect]
     Active Substance: BISOPROLOL
     Dates: start: 20131008
  16. FLUOXETINE [Suspect]
     Active Substance: FLUOXETINE HYDROCHLORIDE
     Dosage: 20 DF, ONCE
     Route: 048
     Dates: start: 20141201, end: 20141201

REACTIONS (6)
  - Suicide attempt [Recovered/Resolved]
  - Intentional overdose [Recovered/Resolved]
  - Syncope [Unknown]
  - Bradycardia [Unknown]
  - Hypotension [Unknown]
  - Vomiting [Unknown]

NARRATIVE: CASE EVENT DATE: 20141201
